FAERS Safety Report 4814586-6 (Version None)
Quarter: 2005Q4

REPORT INFORMATION
  Report Type: 
  Country: None (occurrence: None)
  Receive Date: 20051028
  Receipt Date: 20051024
  Transmission Date: 20060501
  Serious: Yes (Other)
  Sender: FDA-Public Use
  Company Number: US-GLAXOSMITHKLINE-A0579406A

PATIENT
  Age: 39 Year
  Sex: Male

DRUGS (3)
  1. AVANDIA [Suspect]
     Dosage: 4MG TWICE PER DAY
     Route: 048
     Dates: start: 20041201
  2. METFORMIN HCL [Concomitant]
  3. UNIRETIC [Concomitant]

REACTIONS (4)
  - MUSCLE ATROPHY [None]
  - PAIN [None]
  - WEIGHT DECREASED [None]
  - WEIGHT GAIN POOR [None]
